FAERS Safety Report 9924329 (Version 4)
Quarter: 2016Q2

REPORT INFORMATION
  Report Type: Report from Study
  Country: US (occurrence: US)
  Receive Date: 20140226
  Receipt Date: 20160429
  Transmission Date: 20160815
  Serious: Yes (Other)
  Sender: FDA-Public Use
  Company Number: US-ROCHE-1338493

PATIENT
  Sex: Female

DRUGS (10)
  1. AVASTIN [Suspect]
     Active Substance: BEVACIZUMAB
     Indication: AGE-RELATED MACULAR DEGENERATION
     Route: 065
  2. ASPIRIN. [Concomitant]
     Active Substance: ASPIRIN
     Route: 065
  3. LUCENTIS [Suspect]
     Active Substance: RANIBIZUMAB
     Indication: NEOVASCULAR AGE-RELATED MACULAR DEGENERATION
     Route: 050
     Dates: start: 20110614
  4. DULOXETINE. [Concomitant]
     Active Substance: DULOXETINE
     Indication: DEPRESSION
  5. PERCOCET [Concomitant]
     Active Substance: ACETAMINOPHEN\OXYCODONE HYDROCHLORIDE
     Indication: PAIN
  6. AMBIEN CR [Concomitant]
     Active Substance: ZOLPIDEM TARTRATE
  7. PRAVASTATIN [Concomitant]
     Active Substance: PRAVASTATIN\PRAVASTATIN SODIUM
     Indication: BLOOD CHOLESTEROL
  8. FLEXERIL [Concomitant]
     Active Substance: CYCLOBENZAPRINE HYDROCHLORIDE
  9. LUCENTIS [Suspect]
     Active Substance: RANIBIZUMAB
     Route: 050
  10. MYDRIACYL [Concomitant]
     Active Substance: TROPICAMIDE
     Route: 065

REACTIONS (8)
  - Detachment of retinal pigment epithelium [Unknown]
  - Lacrimation increased [Unknown]
  - Vision blurred [Unknown]
  - Macular degeneration [Unknown]
  - Eye irritation [Unknown]
  - Eye irritation [Recovered/Resolved]
  - Eye pruritus [Unknown]
  - Off label use [Unknown]
